FAERS Safety Report 16148123 (Version 2)
Quarter: 2019Q2

REPORT INFORMATION
  Report Type: Spontaneous
  Country: CH (occurrence: CH)
  Receive Date: 20190402
  Receipt Date: 20190513
  Transmission Date: 20190711
  Serious: Yes (Death)
  Sender: FDA-Public Use
  Company Number: CH-PFIZER INC-2019141932

PATIENT
  Age: 74 Year
  Sex: Male
  Weight: 72 kg

DRUGS (1)
  1. IBRANCE [Suspect]
     Active Substance: PALBOCICLIB
     Indication: SMALL CELL LUNG CANCER METASTATIC
     Dosage: UNK UNK, CYCLIC
     Dates: end: 20190213

REACTIONS (2)
  - Product use in unapproved indication [Unknown]
  - Sepsis [Fatal]
